FAERS Safety Report 5198399-4 (Version None)
Quarter: 2006Q4

REPORT INFORMATION
  Report Type: 
  Country: None (occurrence: None)
  Receive Date: 20061229
  Receipt Date: 20061226
  Transmission Date: 20070319
  Serious: Yes (Life-Threatening, Hospitalization)
  Sender: FDA-Public Use
  Company Number: 163-C5013-06110383

PATIENT
  Age: 89 Year
  Sex: Male
  Weight: 8409 kg

DRUGS (9)
  1. REVLIMID [Suspect]
     Indication: MYELODYSPLASTIC SYNDROME
     Dosage: 5 MG, EVERY OTHER DAY, ORAL; 5 MG, EVERY MONDAY, WEDNESDAY, AND FRIDAY, ORAL
     Route: 048
     Dates: start: 20060129, end: 20061104
  2. REVLIMID [Suspect]
     Indication: MYELODYSPLASTIC SYNDROME
     Dosage: 5 MG, EVERY OTHER DAY, ORAL; 5 MG, EVERY MONDAY, WEDNESDAY, AND FRIDAY, ORAL
     Route: 048
     Dates: start: 20061205
  3. ALTACE [Concomitant]
  4. ISORDIL [Concomitant]
  5. METOPROLOL TARTRATE [Concomitant]
  6. NIASPAN ER (NICOTINIC ACID) [Concomitant]
  7. ZOCOR [Concomitant]
  8. ASPIRIN [Concomitant]
  9. CEREBYX [Suspect]
     Indication: CONVULSION
     Dates: start: 20061104

REACTIONS (14)
  - APNOEA [None]
  - ASTHENIA [None]
  - BLOOD ALKALINE PHOSPHATASE INCREASED [None]
  - BLOOD GLUCOSE INCREASED [None]
  - CHEST X-RAY ABNORMAL [None]
  - CONSCIOUSNESS FLUCTUATING [None]
  - CONTUSION [None]
  - DEEP VEIN THROMBOSIS [None]
  - GRAND MAL CONVULSION [None]
  - HAEMOGLOBIN DECREASED [None]
  - METABOLIC ACIDOSIS [None]
  - PLATELET COUNT DECREASED [None]
  - SINUS TACHYCARDIA [None]
  - SUBARACHNOID HAEMORRHAGE [None]
